FAERS Safety Report 7023441-5 (Version None)
Quarter: 2010Q3

REPORT INFORMATION
  Report Type: 
  Country: None (occurrence: None)
  Receive Date: 20100930
  Receipt Date: 20100921
  Transmission Date: 20110219
  Serious: Yes (Other)
  Sender: FDA-Public Use
  Company Number: US-MPIJNJ-2010-04916

PATIENT
  Sex: Female

DRUGS (3)
  1. VELCADE [Suspect]
     Dosage: 1.6 UNK, UNK
  2. RITUXIMAB [Suspect]
  3. ZEVALIN [Suspect]

REACTIONS (3)
  - DYSPNOEA [None]
  - PALPITATIONS [None]
  - VENTRICULAR EXTRASYSTOLES [None]
